FAERS Safety Report 9057407 (Version 1)
Quarter: 2013Q1

REPORT INFORMATION
  Report Type: Report from Study
  Country: US (occurrence: US)
  Receive Date: 20130204
  Receipt Date: 20130204
  Transmission Date: 20140127
  Serious: Yes (Hospitalization)
  Sender: FDA-Public Use
  Company Number: US-009507513-1301USA011306

PATIENT
  Age: 78 Year
  Sex: Female
  Weight: 56.24 kg

DRUGS (16)
  1. LISINOPRIL [Suspect]
     Indication: HYPERTENSION
     Dosage: 10 MG, UNK
     Route: 048
     Dates: end: 20121110
  2. LISINOPRIL [Suspect]
     Dosage: 20 MG, BID
     Route: 048
     Dates: start: 20121111, end: 20121121
  3. ARICEPT [Suspect]
     Indication: DEMENTIA ALZHEIMER^S TYPE
     Dosage: 10 MG, QD
     Route: 048
     Dates: start: 20070605, end: 20121121
  4. METOPROLOL [Suspect]
     Indication: HYPERTENSION
     Dosage: 25 MG, UNK
     Route: 048
     Dates: end: 20121120
  5. METOPROLOL [Suspect]
     Dosage: 12.5 MG, BID
     Route: 048
     Dates: start: 20121121, end: 20121121
  6. AMLODIPINE BESYLATE [Suspect]
     Indication: HYPERTENSION
     Dosage: 5 MG, QD
     Route: 048
     Dates: start: 20121114, end: 20121121
  7. ALENDRONATE SODIUM [Suspect]
     Dosage: UNK
  8. STUDY DRUG (UNSPECIFIED) [Suspect]
     Indication: DEMENTIA ALZHEIMER^S TYPE
     Dosage: UNK
     Route: 030
     Dates: start: 20120823
  9. SINEMET [Concomitant]
     Dosage: UNK
     Route: 048
  10. CALTRATE [Concomitant]
     Dosage: UNK
  11. FLOVENT HFA [Concomitant]
     Dosage: UNK
  12. PREDNISOLONE ACETATE [Concomitant]
     Dosage: UNK
  13. ALBUTEROL [Concomitant]
     Dosage: UNK
  14. BROMDAY [Concomitant]
     Dosage: UNK
  15. SIMVASTATIN [Concomitant]
     Dosage: UNK
  16. VIGAMOX [Concomitant]
     Dosage: UNK

REACTIONS (5)
  - Ankle fracture [Unknown]
  - Syncope [Recovering/Resolving]
  - Hypertension [Unknown]
  - Sinus bradycardia [Unknown]
  - Fall [Unknown]
